FAERS Safety Report 6659774-1 (Version None)
Quarter: 2010Q1

REPORT INFORMATION
  Report Type: 
  Country: None (occurrence: None)
  Receive Date: 20100330
  Receipt Date: 20100326
  Transmission Date: 20100710
  Serious: Yes (Life-Threatening)
  Sender: FDA-Public Use
  Company Number: DE-MERCK-1003DEU00040

PATIENT
  Age: 7 Year
  Sex: Male
  Weight: 11 kg

DRUGS (6)
  1. SINGULAIR [Suspect]
     Indication: BRONCHITIS
     Route: 048
     Dates: start: 20100301, end: 20100309
  2. PREDNISOLONE [Concomitant]
     Route: 065
  3. ALBUTEROL [Concomitant]
     Route: 065
  4. FLUTICASONE PROPIONATE [Concomitant]
     Route: 055
  5. IPRATROPIUM BROMIDE [Concomitant]
     Route: 055
  6. OMEPRAZOLE [Concomitant]
     Route: 065

REACTIONS (3)
  - CYANOSIS [None]
  - DYSPNOEA [None]
  - OFF LABEL USE [None]
